FAERS Safety Report 11571705 (Version 1)
Quarter: 2015Q3

REPORT INFORMATION
  Report Type: Spontaneous
  Country: US (occurrence: US)
  Receive Date: 20150916
  Receipt Date: 20150916
  Transmission Date: 20151125
  Serious: No
  Sender: FDA-Public Use
  Company Number: US-ELI_LILLY_AND_COMPANY-US200909006941

PATIENT
  Age: 70 Year
  Sex: Female

DRUGS (6)
  1. CALCIUM [Concomitant]
     Active Substance: CALCIUM
     Dosage: UNK, 2/D
  2. FORTEO [Suspect]
     Active Substance: TERIPARATIDE
     Dosage: 20 UG, DAILY (1/D)
  3. STATIN /00084401/ [Concomitant]
     Indication: BLOOD CHOLESTEROL
  4. FORTEO [Suspect]
     Active Substance: TERIPARATIDE
     Dosage: 20 UG, DAILY (1/D)
     Dates: start: 2007
  5. NIASPAN [Concomitant]
     Active Substance: NIACIN
     Indication: BLOOD CHOLESTEROL
  6. FISH OIL [Concomitant]
     Active Substance: FISH OIL
     Dosage: UNK, 3/D

REACTIONS (6)
  - Injection site erythema [Not Recovered/Not Resolved]
  - Pain in extremity [Unknown]
  - Depressed mood [Unknown]
  - Cataract [Not Recovered/Not Resolved]
  - Visual impairment [Unknown]
  - Asthenia [Not Recovered/Not Resolved]

NARRATIVE: CASE EVENT DATE: 2007
